FAERS Safety Report 6582731-0 (Version None)
Quarter: 2010Q1

REPORT INFORMATION
  Report Type: 
  Country: None (occurrence: None)
  Receive Date: 20100203
  Receipt Date: 20100201
  Transmission Date: 20100710
  Serious: Yes (Hospitalization)
  Sender: FDA-Public Use
  Company Number: SP02774

PATIENT
  Age: 90 Year
  Sex: Female
  Weight: 52.1637 kg

DRUGS (4)
  1. MOVIPREP [Suspect]
     Indication: BOWEL PREPARATION
     Dosage: ORAL
     Route: 048
     Dates: start: 20100128
  2. TAMBOCOR [Concomitant]
  3. TOPROL-XL [Concomitant]
  4. VITAMINS [Concomitant]

REACTIONS (2)
  - DEHYDRATION [None]
  - TREMOR [None]
